FAERS Safety Report 15608764 (Version 4)
Quarter: 2019Q1

REPORT INFORMATION
  Report Type: Spontaneous
  Country: US (occurrence: US)
  Receive Date: 20181112
  Receipt Date: 20190121
  Transmission Date: 20190417
  Serious: No
  Sender: FDA-Public Use
  Company Number: US-SA-2018SA304447

PATIENT
  Age: 78 Year
  Sex: Male

DRUGS (1)
  1. PRALUENT [Suspect]
     Active Substance: ALIROCUMAB
     Indication: BLOOD CHOLESTEROL
     Dosage: 150 MG
     Route: 058
     Dates: start: 20180801

REACTIONS (4)
  - Rash erythematous [Recovered/Resolved]
  - Injection site reaction [Unknown]
  - Skin exfoliation [Recovered/Resolved]
  - Burning sensation [Recovered/Resolved]
